FAERS Safety Report 21283868 (Version 9)
Quarter: 2024Q3

REPORT INFORMATION
  Report Type: Spontaneous
  Country: US (occurrence: US)
  Receive Date: 20220901
  Receipt Date: 20240824
  Transmission Date: 20241016
  Serious: Yes (Other)
  Sender: TAKEDA
  Company Number: US-TAKEDA-2022TUS058725

PATIENT
  Sex: Female

DRUGS (7)
  1. ENTYVIO [Suspect]
     Active Substance: VEDOLIZUMAB
     Indication: Crohn^s disease
     Dosage: 300 MILLIGRAM
     Route: 042
     Dates: start: 2021
  2. ENTYVIO [Suspect]
     Active Substance: VEDOLIZUMAB
     Indication: Colitis ulcerative
     Dosage: 300 MILLIGRAM
     Route: 042
  3. ENTYVIO [Suspect]
     Active Substance: VEDOLIZUMAB
     Dosage: 300 MILLIGRAM
     Route: 042
  4. HUMIRA [Suspect]
     Active Substance: ADALIMUMAB
     Indication: Crohn^s disease
     Dosage: 40 MILLIGRAM, Q2WEEKS
     Route: 058
     Dates: start: 2022
  5. EMGALITY [Concomitant]
     Active Substance: GALCANEZUMAB-GNLM
     Dosage: UNK
  6. VITAMIN D [Concomitant]
     Active Substance: VITAMIN D NOS
     Dosage: UNK
  7. VITAMINS [Concomitant]
     Active Substance: VITAMINS
     Dosage: UNK

REACTIONS (19)
  - Haematochezia [Recovered/Resolved]
  - Haemorrhage [Unknown]
  - Abdominal pain upper [Unknown]
  - Illness [Unknown]
  - Stress [Unknown]
  - Abdominal discomfort [Unknown]
  - Malaise [Unknown]
  - Feeding disorder [Unknown]
  - Dehydration [Unknown]
  - Faeces soft [Unknown]
  - Therapeutic response shortened [Not Recovered/Not Resolved]
  - Pregnancy [Recovered/Resolved]
  - Abdominal tenderness [Unknown]
  - Diarrhoea [Unknown]
  - Abdominal pain [Unknown]
  - Vomiting [Unknown]
  - Muscle spasms [Unknown]
  - Headache [Unknown]
  - Pyrexia [Unknown]
